FAERS Safety Report 5670945-3 (Version None)
Quarter: 2008Q1

REPORT INFORMATION
  Report Type: 
  Country: None (occurrence: None)
  Receive Date: 20080313
  Receipt Date: 20080304
  Transmission Date: 20080703
  Serious: Yes (Other)
  Sender: FDA-Public Use
  Company Number: SPV1-2008-00492

PATIENT
  Age: 11 Year
  Sex: Female
  Weight: 31.7 kg

DRUGS (2)
  1. DAYTRANA [Suspect]
     Indication: ATTENTION DEFICIT/HYPERACTIVITY DISORDER
     Dosage: 20 MG, 1X/DAY:QD, TRANSDERMAL
     Route: 062
     Dates: start: 20071001, end: 20080201
  2. ADDERALL XR (AMFETAMINE ASPARTATE, AMFETAMINE SULFATE, DEXAMFETAMINE [Concomitant]

REACTIONS (5)
  - APPLICATION SITE ERYTHEMA [None]
  - APPLICATION SITE RASH [None]
  - DRUG INEFFECTIVE [None]
  - PNEUMONIA [None]
  - TIC [None]
